FAERS Safety Report 8011780-0 (Version None)
Quarter: 2011Q4

REPORT INFORMATION
  Report Type: 
  Country: None (occurrence: None)
  Receive Date: 20111228
  Receipt Date: 20111219
  Transmission Date: 20120403
  Serious: Yes (Death, Other)
  Sender: FDA-Public Use
  Company Number: US-PFIZER INC-2011309577

PATIENT
  Age: 48 Year
  Sex: Male

DRUGS (6)
  1. GABAPENTIN [Suspect]
     Dosage: UNK
  2. ACETAMINOPHEN AND HYDROCODONE BITARTRATE [Suspect]
     Dosage: UNK
  3. TIOTROPIUM [Suspect]
     Dosage: UNK
  4. AMITRIPTYLINE HCL [Suspect]
     Dosage: UNK
  5. BUPROPION HCL [Suspect]
     Dosage: UNK
  6. METHYLPREDNISOLONE [Suspect]
     Dosage: UNK
     Route: 065

REACTIONS (1)
  - DEATH [None]
